FAERS Safety Report 8509853-9 (Version None)
Quarter: 2012Q2

REPORT INFORMATION
  Report Type: 
  Country: None (occurrence: None)
  Receive Date: 20120405
  Receipt Date: 20090626
  Transmission Date: 20120825
  Serious: Yes (Disabling)
  Sender: FDA-Public Use
  Company Number: PHEH2009US06190

PATIENT
  Age: 59 Year
  Sex: Female
  Weight: 49.9 kg

DRUGS (5)
  1. PROTONIX [Concomitant]
  2. VERAPAMIL [Concomitant]
  3. AMBIEN [Concomitant]
  4. RECLAST [Suspect]
     Indication: OSTEOPOROSIS POSTMENOPAUSAL
     Dosage: 5 MG, UNK, INTRAVENOUS
     Route: 042
     Dates: start: 20090101
  5. PREMARIN [Concomitant]

REACTIONS (3)
  - MYALGIA [None]
  - ARTHRALGIA [None]
  - FATIGUE [None]
